FAERS Safety Report 8118485-6 (Version None)
Quarter: 2012Q1

REPORT INFORMATION
  Report Type: 
  Country: None (occurrence: None)
  Receive Date: 20120207
  Receipt Date: 20120131
  Transmission Date: 20120608
  Serious: Yes (Other)
  Sender: FDA-Public Use
  Company Number: US-PFIZER INC-2012004982

PATIENT
  Sex: Male
  Weight: 43.991 kg

DRUGS (4)
  1. VITAMIN D [Concomitant]
     Indication: VITAMIN D DECREASED
     Dosage: 1000 IU, (1000 IU PER DAY)
     Dates: start: 20080828
  2. CORTEF [Concomitant]
     Indication: ADRENAL INSUFFICIENCY
     Dosage: 10 MG, 3X/DAY
     Dates: start: 20061102
  3. SYNTHROID [Concomitant]
     Indication: HYPOTHYROIDISM
     Dosage: 88 UG, 1X/DAY
     Dates: start: 20061102
  4. GENOTROPIN [Suspect]
     Indication: HYPOPITUITARISM
     Dosage: 2.6MG, 6 DAYS A WEEK
     Route: 058
     Dates: start: 20110106, end: 20120105

REACTIONS (2)
  - NEOPLASM RECURRENCE [None]
  - CRANIOPHARYNGIOMA [None]
